FAERS Safety Report 8997323 (Version 1)
Quarter: 2013Q1

REPORT INFORMATION
  Report Type: Spontaneous
  Country: US (occurrence: US)
  Receive Date: 20130104
  Receipt Date: 20130104
  Transmission Date: 20140127
  Serious: No
  Sender: FDA-Public Use
  Company Number: US-009507513-1301USA001501

PATIENT
  Age: 4 Year
  Sex: Female
  Weight: 15.87 kg

DRUGS (2)
  1. CLARITIN ORAL SOLUTION [Suspect]
     Indication: SEASONAL ALLERGY
     Dosage: UNK, PRN
     Route: 048
     Dates: start: 2012
  2. CLARITIN ORAL SOLUTION [Suspect]
     Indication: RHINORRHOEA
     Dosage: 10 MG, ONCE
     Route: 048
     Dates: start: 20121209

REACTIONS (1)
  - Overdose [Recovering/Resolving]
